FAERS Safety Report 12635006 (Version 2)
Quarter: 2017Q3

REPORT INFORMATION
  Report Type: Spontaneous
  Country: US (occurrence: US)
  Receive Date: 20160808
  Receipt Date: 20170808
  Transmission Date: 20171127
  Serious: No
  Sender: FDA-Public Use
  Company Number: US-IMPAX LABORATORIES, INC-2015-IPXL-01267

PATIENT
  Age: 64 Year
  Sex: Male
  Weight: 82 kg

DRUGS (4)
  1. OXYMORPHONE HYDROCHLORIDE ER [Suspect]
     Active Substance: OXYMORPHONE HYDROCHLORIDE
     Indication: ANALGESIC THERAPY
     Dosage: 10 MG, EVERY 12HR
     Route: 048
     Dates: start: 20151120
  2. VALIUM [Concomitant]
     Active Substance: DIAZEPAM
     Indication: MUSCLE SPASMS
     Dosage: 10 MG, BEDTIME
     Route: 048
  3. OXYCODONE IR [Concomitant]
     Active Substance: OXYCODONE
     Indication: BREAKTHROUGH PAIN
     Dosage: 5 MG, EVERY 3 TO 4 HOURS UP TO 8 TABLETS A DAY
     Route: 048
  4. OXYMORPHONE HYDROCHLORIDE ER [Suspect]
     Active Substance: OXYMORPHONE HYDROCHLORIDE
     Dosage: 15 MG, 2 /DAY
     Route: 048
     Dates: start: 201601

REACTIONS (4)
  - Abdominal pain upper [Not Recovered/Not Resolved]
  - Medication error [Not Recovered/Not Resolved]
  - Drug effect incomplete [Not Recovered/Not Resolved]
  - Therapeutic response delayed [Not Recovered/Not Resolved]

NARRATIVE: CASE EVENT DATE: 201511
